FAERS Safety Report 5062054-1 (Version None)
Quarter: 2006Q3

REPORT INFORMATION
  Report Type: 
  Country: None (occurrence: None)
  Receive Date: 20060720
  Receipt Date: 20060720
  Transmission Date: 20061208
  Serious: Yes (Hospitalization)
  Sender: FDA-Public Use
  Company Number: None

PATIENT
  Age: 79 Year
  Sex: Male
  Weight: 68.4932 kg

DRUGS (3)
  1. OXYCODONE HCL [Suspect]
     Indication: PAIN
     Dosage: 15 MG Q 4 H PRN
     Dates: start: 20060430, end: 20060524
  2. FENTANYL [Suspect]
     Indication: PAIN
     Dosage: 25 MCG/HR PATCH
     Dates: start: 20060521, end: 20060524
  3. . [Concomitant]

REACTIONS (3)
  - CONSTIPATION [None]
  - LETHARGY [None]
  - OBSTRUCTION [None]
